FAERS Safety Report 21414286 (Version 4)
Quarter: 2022Q4

REPORT INFORMATION
  Report Type: Report from Study
  Country: US (occurrence: US)
  Receive Date: 20221006
  Receipt Date: 20221223
  Transmission Date: 20230112
  Serious: Yes (Disabling, Other)
  Sender: FDA-Public Use
  Company Number: US-ABBVIE-22K-163-4442510-00

PATIENT
  Age: 68 Year
  Sex: Female
  Weight: 73 kg

DRUGS (14)
  1. HUMIRA [Suspect]
     Active Substance: ADALIMUMAB
     Indication: Rheumatoid arthritis
     Route: 058
  2. HUMIRA [Suspect]
     Active Substance: ADALIMUMAB
     Route: 058
  3. HUMIRA [Suspect]
     Active Substance: ADALIMUMAB
     Route: 058
  4. HUMIRA [Suspect]
     Active Substance: ADALIMUMAB
     Route: 058
     Dates: end: 20221010
  5. HUMIRA [Suspect]
     Active Substance: ADALIMUMAB
     Dosage: LAST ADMIN DATE:2022
     Route: 058
     Dates: start: 20221123
  6. CELEBREX [Concomitant]
     Active Substance: CELECOXIB
     Indication: Arthralgia
  7. METOLAZONE [Concomitant]
     Active Substance: METOLAZONE
     Indication: Myositis
     Dosage: PILL
     Route: 048
  8. MODERNA COVID-19 VACCINE [Concomitant]
     Active Substance: ELASOMERAN
     Indication: COVID-19 immunisation
     Dosage: FIRST DOSE, ONCE
     Route: 030
     Dates: start: 20210226, end: 20210226
  9. MODERNA COVID-19 VACCINE [Concomitant]
     Active Substance: ELASOMERAN
     Indication: COVID-19 immunisation
     Dosage: SECOND DOSE, ONCE
     Route: 030
     Dates: start: 20210401, end: 20210401
  10. MODERNA COVID-19 VACCINE [Concomitant]
     Active Substance: ELASOMERAN
     Indication: COVID-19 immunisation
     Dosage: BOOSTER DOSE, ONCE
     Route: 030
     Dates: start: 20211108, end: 20211108
  11. TRIAMTERENE [Concomitant]
     Active Substance: TRIAMTERENE
     Indication: Blood pressure measurement
     Dosage: PILL
  12. METFORMIN [Concomitant]
     Active Substance: METFORMIN HYDROCHLORIDE
     Indication: Type 2 diabetes mellitus
     Dosage: PILL
  13. CELECOXIB [Concomitant]
     Active Substance: CELECOXIB
     Indication: Myalgia
     Dosage: PILL
     Route: 048
  14. Rosuvastatins [Concomitant]
     Indication: Blood cholesterol
     Dosage: PILL

REACTIONS (19)
  - Knee arthroplasty [Recovering/Resolving]
  - Limb operation [Recovered/Resolved]
  - Musculoskeletal stiffness [Unknown]
  - Arthralgia [Not Recovered/Not Resolved]
  - Limb mass [Not Recovered/Not Resolved]
  - Limb mass [Recovered/Resolved]
  - Carpal tunnel syndrome [Unknown]
  - Dysstasia [Unknown]
  - Spinal column injury [Recovered/Resolved]
  - Joint lock [Unknown]
  - Arthritis [Not Recovered/Not Resolved]
  - Ligament sprain [Unknown]
  - Head injury [Unknown]
  - Surgery [Unknown]
  - Fall [Unknown]
  - Headache [Unknown]
  - Arthralgia [Unknown]
  - Carpal tunnel syndrome [Recovered/Resolved]
  - Pain [Not Recovered/Not Resolved]

NARRATIVE: CASE EVENT DATE: 20220621
